FAERS Safety Report 15233509 (Version 1)
Quarter: 2018Q3

REPORT INFORMATION
  Report Type: Spontaneous
  Country: CA (occurrence: CA)
  Receive Date: 20180802
  Receipt Date: 20180802
  Transmission Date: 20181010
  Serious: Yes (Life-Threatening)
  Sender: FDA-Public Use
  Company Number: CA-FRESENIUS KABI-FK201808309

PATIENT
  Age: 38 Year
  Sex: Female
  Weight: 112 kg

DRUGS (12)
  1. BISOPROLOL [Concomitant]
     Active Substance: BISOPROLOL
  2. MONTELUKAST [Concomitant]
     Active Substance: MONTELUKAST SODIUM
  3. SODIUM CHLORIDE 0.9% (MANUFACTURER UNKNOWN) [Suspect]
     Active Substance: SODIUM CHLORIDE
     Indication: PRODUCT USED FOR UNKNOWN INDICATION
     Route: 042
  4. AMLODIPINE [Concomitant]
     Active Substance: AMLODIPINE BESYLATE
  5. MEFENAMIC ACID. [Concomitant]
     Active Substance: MEFENAMIC ACID
  6. CANDESARTAN CILEXETIL. [Concomitant]
     Active Substance: CANDESARTAN CILEXETIL
  7. CLINDAMYCIN. [Suspect]
     Active Substance: CLINDAMYCIN
     Indication: STREPTOCOCCAL BACTERAEMIA
     Route: 042
  8. CLAVULANATE POTASSIUM/AMOXICILLIN TRIHYDRATE [Concomitant]
  9. CLINDAMYCIN. [Suspect]
     Active Substance: CLINDAMYCIN
     Indication: CELLULITIS
  10. FLUTICASONE PROPIONATE. [Concomitant]
     Active Substance: FLUTICASONE PROPIONATE
  11. PARACETAMOL [Concomitant]
     Active Substance: ACETAMINOPHEN
  12. SALBUTAMOL [Concomitant]
     Active Substance: ALBUTEROL

REACTIONS (12)
  - Blood pressure increased [Recovered/Resolved]
  - Loss of consciousness [Recovered/Resolved]
  - Unresponsive to stimuli [Recovered/Resolved]
  - Acute respiratory failure [Recovered/Resolved]
  - Anaphylactic reaction [Recovered/Resolved]
  - Dyspnoea [Recovered/Resolved]
  - Endotracheal intubation [Recovered/Resolved]
  - Oxygen saturation decreased [Recovered/Resolved]
  - Throat irritation [Recovered/Resolved]
  - Neuromuscular blockade [Recovered/Resolved]
  - Heart rate increased [Recovered/Resolved]
  - Pulmonary oedema [Recovered/Resolved]
